FAERS Safety Report 9352246 (Version 2)
Quarter: 2013Q2

REPORT INFORMATION
  Report Type: Spontaneous
  Country: US (occurrence: US)
  Receive Date: 20130617
  Receipt Date: 20130621
  Transmission Date: 20140414
  Serious: Yes (Other)
  Sender: FDA-Public Use
  Company Number: CHPA2013US009684

PATIENT
  Age: 76 Year
  Sex: Male

DRUGS (1)
  1. VOLTAREN GEL [Suspect]
     Dosage: UNK, UNK
     Route: 061

REACTIONS (2)
  - Thermal burn [Unknown]
  - Blister [Unknown]
